FAERS Safety Report 8267579-3 (Version None)
Quarter: 2012Q2

REPORT INFORMATION
  Report Type: 
  Country: None (occurrence: None)
  Receive Date: 20120409
  Receipt Date: 20120329
  Transmission Date: 20120825
  Serious: Yes (Hospitalization)
  Sender: FDA-Public Use
  Company Number: US-GENZYME-MOZO-1000602

PATIENT

DRUGS (6)
  1. DECITABINE [Concomitant]
     Indication: ACUTE MYELOID LEUKAEMIA
     Dosage: 20 MG/M2, QD
     Route: 042
     Dates: start: 20110912, end: 20110916
  2. MOZOBIL [Suspect]
     Indication: ACUTE MYELOID LEUKAEMIA
  3. DIFLUCAN [Concomitant]
     Indication: PRODUCT USED FOR UNKNOWN INDICATION
     Route: 065
  4. CIPROFLOXACIN HCL [Concomitant]
     Indication: PRODUCT USED FOR UNKNOWN INDICATION
     Route: 065
  5. ESCITALOPRAM [Concomitant]
     Indication: PRODUCT USED FOR UNKNOWN INDICATION
     Route: 065
  6. MOZOBIL [Suspect]
     Indication: HAEMATOPOIETIC STEM CELL MOBILISATION
     Dosage: 21.2 MG, UNK
     Route: 042
     Dates: start: 20110912, end: 20110916

REACTIONS (2)
  - GASTROENTERITIS [None]
  - FEBRILE NEUTROPENIA [None]
